FAERS Safety Report 5622159-0 (Version None)
Quarter: 2008Q1

REPORT INFORMATION
  Report Type: 
  Country: None (occurrence: None)
  Receive Date: 20080211
  Receipt Date: 20080128
  Transmission Date: 20080703
  Serious: Yes (Other)
  Sender: FDA-Public Use
  Company Number: US-RANBAXY-2007US-06874

PATIENT

DRUGS (3)
  1. CIPROFLOXACIN [Suspect]
     Indication: DIVERTICULITIS
     Dosage: 500 MG, BID
     Route: 048
     Dates: start: 20070209, end: 20070213
  2. SYNTHROID [Concomitant]
     Indication: DIVERTICULITIS
  3. ACIPHEX [Concomitant]
     Indication: DRUG USE FOR UNKNOWN INDICATION

REACTIONS (11)
  - ANXIETY [None]
  - BURNING SENSATION [None]
  - HALLUCINATION [None]
  - HYPOAESTHESIA [None]
  - MUSCLE RUPTURE [None]
  - MUSCULAR WEAKNESS [None]
  - PANIC REACTION [None]
  - RASH [None]
  - TINNITUS [None]
  - TREMOR [None]
  - VISION BLURRED [None]
